FAERS Safety Report 10638486 (Version 1)
Quarter: 2014Q4

REPORT INFORMATION
  Report Type: Spontaneous
  Country: US (occurrence: None)
  Receive Date: 20141204
  Receipt Date: 20141204
  Transmission Date: 20150529
  Serious: Yes (Other)
  Sender: FDA-Public Use
  Company Number: 2014-US-015552

PATIENT
  Age: 58 Year
  Sex: Male

DRUGS (2)
  1. XYREM [Suspect]
     Active Substance: SODIUM OXYBATE
     Indication: PRODUCT USED FOR UNKNOWN INDICATION
     Dosage: 3 G, BID, ORAL
     Route: 048
     Dates: start: 200405
  2. HYDROCODONE/IBUPROFEN(HYDROCODONE BITRATE, IBUPROFEN) ONGOING [Concomitant]

REACTIONS (2)
  - Surgery [None]
  - Procedural pain [None]

NARRATIVE: CASE EVENT DATE: 201404
